FAERS Safety Report 19322834 (Version 1)
Quarter: 2021Q2

REPORT INFORMATION
  Report Type: Spontaneous
  Country: JP (occurrence: JP)
  Receive Date: 20210528
  Receipt Date: 20210528
  Transmission Date: 20210717
  Serious: Yes (Death)
  Sender: FDA-Public Use
  Company Number: JP-BAXTER-2021BAX013191

PATIENT
  Age: 6 Decade
  Sex: Male

DRUGS (1)
  1. ENDOXAN 1G [Suspect]
     Active Substance: CYCLOPHOSPHAMIDE
     Indication: PERIPHERAL BLOOD STEM CELL APHERESIS
     Dosage: 4000 MG/M2/DAY HIGH?DOSE
     Route: 065

REACTIONS (1)
  - Cardiomyopathy [Fatal]
